FAERS Safety Report 14925277 (Version 1)
Quarter: 2018Q2

REPORT INFORMATION
  Report Type: Spontaneous
  Country: US (occurrence: US)
  Receive Date: 20180522
  Receipt Date: 20180522
  Transmission Date: 20180711
  Serious: No
  Sender: FDA-Public Use
  Company Number: US-MYLANLABS-2018M1034452

PATIENT
  Age: 61 Year
  Sex: Male
  Weight: 77 kg

DRUGS (2)
  1. LEVALBUTEROL INHALATION SOLUTION, USP [Suspect]
     Active Substance: LEVALBUTEROL
     Indication: ASTHMA
     Dosage: UNK
     Route: 055
  2. LEVALBUTEROL INHALATION SOLUTION, USP [Suspect]
     Active Substance: LEVALBUTEROL
     Dosage: UNK

REACTIONS (4)
  - Drug ineffective [Not Recovered/Not Resolved]
  - Dyspnoea [Not Recovered/Not Resolved]
  - Product packaging quantity issue [Unknown]
  - Nervousness [Unknown]

NARRATIVE: CASE EVENT DATE: 20180519
